FAERS Safety Report 10061202 (Version 2)
Quarter: 2014Q2

REPORT INFORMATION
  Report Type: Spontaneous
  Country: JP (occurrence: JP)
  Receive Date: 20140407
  Receipt Date: 20140417
  Transmission Date: 20141212
  Serious: Yes (Other)
  Sender: FDA-Public Use
  Company Number: JP-RANBAXY-2014RR-79679

PATIENT
  Age: 68 Year
  Sex: Male

DRUGS (9)
  1. CLARITHROMYCIN [Suspect]
     Indication: MYCOBACTERIAL INFECTION
     Dosage: 800 MG, DAILY
     Route: 048
  2. CLARITHROMYCIN [Suspect]
     Indication: MYCOBACTERIUM AVIUM COMPLEX INFECTION
     Dosage: 1000 MG, DAILY
     Route: 048
  3. RIFAMPICIN [Suspect]
     Indication: MYCOBACTERIAL INFECTION
     Dosage: 450 MG, DAILY
     Route: 048
  4. ETHAMBUTOL [Suspect]
     Indication: MYCOBACTERIAL INFECTION
     Dosage: 750 MG, DAILY
     Route: 048
  5. RIFABUTIN [Suspect]
     Indication: MYCOBACTERIUM AVIUM COMPLEX INFECTION
     Dosage: 300 MG, DAILY
     Route: 065
  6. STREPTOMYCIN [Suspect]
     Indication: MYCOBACTERIUM AVIUM COMPLEX INFECTION
     Dosage: 0.75 G, 3/WEEK
     Route: 065
  7. PREDNISOLONE [Concomitant]
     Indication: POLYCHONDRITIS
     Dosage: 10 MG, DAILY
     Route: 048
  8. PREDNISOLONE [Concomitant]
     Indication: POLYCHONDRITIS
     Dosage: 5 MG, DAILY
     Route: 048
  9. MIZORIBINE [Concomitant]
     Indication: POLYCHONDRITIS
     Dosage: UNK
     Route: 065

REACTIONS (2)
  - Immune reconstitution inflammatory syndrome [Recovering/Resolving]
  - Condition aggravated [Recovering/Resolving]
